FAERS Safety Report 4549768-4 (Version None)
Quarter: 2005Q1

REPORT INFORMATION
  Report Type: 
  Country: None (occurrence: None)
  Receive Date: 20050111
  Receipt Date: 20050106
  Transmission Date: 20050727
  Serious: Yes (Hospitalization)
  Sender: FDA-Public Use
  Company Number: GB-MERCK-0501GBR00056

PATIENT
  Age: 77 Year
  Sex: Male
  Weight: 101 kg

DRUGS (5)
  1. ZETIA [Suspect]
     Indication: HYPERCHOLESTEROLAEMIA
     Route: 048
     Dates: start: 20040901
  2. ASPIRIN [Suspect]
     Indication: MYOCARDIAL ISCHAEMIA
     Route: 048
     Dates: start: 19920101
  3. ATENOLOL [Concomitant]
     Indication: PAIN
     Route: 048
     Dates: start: 19890101
  4. DOTHIEPIN HYDROCHLORIDE [Concomitant]
     Indication: ANXIETY
     Route: 048
     Dates: start: 20020101
  5. FUROSEMIDE [Concomitant]
     Route: 048
     Dates: start: 19920101

REACTIONS (2)
  - GASTROINTESTINAL HAEMORRHAGE [None]
  - MELAENA [None]
